FAERS Safety Report 4458000-1 (Version None)
Quarter: 2004Q3

REPORT INFORMATION
  Report Type: 
  Country: None (occurrence: None)
  Receive Date: 20040917
  Receipt Date: 20040503
  Transmission Date: 20050211
  Serious: Yes (Other)
  Sender: FDA-Public Use
  Company Number: US-JNJFOC-20040402484

PATIENT
  Age: 50 Year
  Sex: Female
  Weight: 100.6985 kg

DRUGS (1)
  1. TOPAMAX [Suspect]
     Indication: PSYCHOTIC DISORDER
     Dosage: 200 MG, ORAL
     Route: 048

REACTIONS (1)
  - PSYCHOTIC DISORDER [None]
